FAERS Safety Report 5476613-5 (Version None)
Quarter: 2007Q4

REPORT INFORMATION
  Report Type: 
  Country: None (occurrence: None)
  Receive Date: 20071004
  Receipt Date: 20070927
  Transmission Date: 20080405
  Serious: No
  Sender: FDA-Public Use
  Company Number: PHBS2007SK15763

PATIENT
  Age: 77 Year
  Sex: Male

DRUGS (2)
  1. STALEVO 100 [Suspect]
     Indication: PARKINSON'S DISEASE
     Dosage: 50 MG, QD
     Route: 065
  2. STALEVO 100 [Suspect]
     Dosage: 50 MG, BID
     Route: 065

REACTIONS (2)
  - ERYTHEMA [None]
  - VISION BLURRED [None]
